FAERS Safety Report 6867635-8 (Version None)
Quarter: 2010Q3

REPORT INFORMATION
  Report Type: 
  Country: None (occurrence: None)
  Receive Date: 20100722
  Receipt Date: 20091009
  Transmission Date: 20110219
  Serious: No
  Sender: FDA-Public Use
  Company Number: US-BAUSCH-2009BL005136

PATIENT
  Age: 68 Year
  Sex: Female

DRUGS (5)
  1. OPCON-A [Suspect]
     Indication: EYE PRURITUS
     Route: 047
     Dates: start: 20090929, end: 20091008
  2. CRESTOR [Concomitant]
     Indication: BLOOD CHOLESTEROL INCREASED
  3. LEVOTHYROXINE SODIUM [Concomitant]
     Indication: HYPOTHYROIDISM
  4. LITHIUM [Concomitant]
     Indication: BIPOLAR DISORDER
  5. DEPAKOTE [Concomitant]
     Indication: BIPOLAR DISORDER

REACTIONS (2)
  - RHINORRHOEA [None]
  - SNEEZING [None]
